FAERS Safety Report 20204439 (Version 1)
Quarter: 2021Q4

REPORT INFORMATION
  Report Type: Spontaneous
  Country: IT (occurrence: IT)
  Receive Date: 20211220
  Receipt Date: 20211220
  Transmission Date: 20220304
  Serious: Yes (Life-Threatening, Hospitalization)
  Sender: FDA-Public Use
  Company Number: IT-TEVA-2021-IT-1988369

PATIENT
  Age: 29 Year
  Sex: Female

DRUGS (25)
  1. LEVETIRACETAM [Suspect]
     Active Substance: LEVETIRACETAM
     Indication: Seizure
     Dosage: FULL DOSAGE
     Route: 065
  2. LEVETIRACETAM [Suspect]
     Active Substance: LEVETIRACETAM
     Indication: Movement disorder
  3. IMMUNE GLOBULIN NOS [Suspect]
     Active Substance: IMMUNE GLOBULIN NOS
     Indication: Encephalitis autoimmune
     Dosage: 0.2 G/KG/DAY
     Route: 042
  4. IMMUNE GLOBULIN NOS [Suspect]
     Active Substance: IMMUNE GLOBULIN NOS
     Dosage: REPEATED ADMINISTRATION AFTER INTUBATION; 0.2 G/KG/ DAY
     Route: 042
  5. METHYLPREDNISOLONE [Suspect]
     Active Substance: METHYLPREDNISOLONE
     Indication: Encephalitis autoimmune
     Dosage: BOLUS ADMINISTRATION
     Route: 050
  6. CYCLOPHOSPHAMIDE [Suspect]
     Active Substance: CYCLOPHOSPHAMIDE
     Indication: Encephalitis autoimmune
     Route: 042
  7. LACOSAMIDE [Suspect]
     Active Substance: LACOSAMIDE
     Indication: Seizure
     Dosage: FULL DOSAGE
     Route: 065
  8. LACOSAMIDE [Suspect]
     Active Substance: LACOSAMIDE
     Indication: Movement disorder
  9. CLOBAZAM [Suspect]
     Active Substance: CLOBAZAM
     Indication: Seizure
     Dosage: FULL DOSAGE
     Route: 065
  10. CLOBAZAM [Suspect]
     Active Substance: CLOBAZAM
     Indication: Movement disorder
  11. PHENYTOIN [Suspect]
     Active Substance: PHENYTOIN
     Indication: Seizure
     Dosage: FULL DOSAGE
     Route: 065
  12. PHENYTOIN [Suspect]
     Active Substance: PHENYTOIN
     Indication: Movement disorder
  13. PHENOBARBITAL [Suspect]
     Active Substance: PHENOBARBITAL
     Indication: Seizure
     Dosage: FULL DOSAGE
     Route: 065
  14. PHENOBARBITAL [Suspect]
     Active Substance: PHENOBARBITAL
     Indication: Movement disorder
  15. TOPIRAMATE [Suspect]
     Active Substance: TOPIRAMATE
     Indication: Seizure
     Dosage: FULL DOSAGE
     Route: 065
  16. TOPIRAMATE [Suspect]
     Active Substance: TOPIRAMATE
     Indication: Movement disorder
  17. PERAMPANEL [Suspect]
     Active Substance: PERAMPANEL
     Indication: Seizure
     Dosage: FULL DOSAGE
     Route: 065
  18. PERAMPANEL [Suspect]
     Active Substance: PERAMPANEL
     Indication: Movement disorder
  19. TETRABENAZINE [Suspect]
     Active Substance: TETRABENAZINE
     Indication: Encephalitis autoimmune
     Dosage: 75 MILLIGRAM DAILY;
  20. BORTEZOMIB [Suspect]
     Active Substance: BORTEZOMIB
     Indication: Encephalitis autoimmune
     Dosage: ON DAYS 1, 4, 8 AND 11 OF EACH CYCLE
     Route: 042
  21. RITUXIMAB [Concomitant]
     Active Substance: RITUXIMAB
     Indication: Encephalitis autoimmune
     Dosage: TWO DOSES WERE ADMINISTERED
     Route: 042
  22. PROPOFOL [Concomitant]
     Active Substance: PROPOFOL
     Indication: Sedation
     Dosage: INFUSION ADMINISTRATION
     Route: 050
  23. MIDAZOLAM [Concomitant]
     Active Substance: MIDAZOLAM
     Indication: Sedation
     Dosage: INFUSION ADMINISTRATION
     Route: 050
  24. KETAMINE [Concomitant]
     Active Substance: KETAMINE
     Indication: Sedation
     Route: 065
  25. TRAMADOL [Concomitant]
     Active Substance: TRAMADOL
     Indication: Dyskinesia
     Dosage: 400 MILLIGRAM DAILY;
     Route: 065

REACTIONS (2)
  - Drug ineffective [Unknown]
  - Off label use [Unknown]
